FAERS Safety Report 10092092 (Version 1)
Quarter: 2014Q2

REPORT INFORMATION
  Report Type: Spontaneous
  Country: US (occurrence: US)
  Receive Date: 20140421
  Receipt Date: 20140421
  Transmission Date: 20141212
  Serious: No
  Sender: FDA-Public Use
  Company Number: US-SANOFI-AVENTIS-2013SA035632

PATIENT
  Age: 83 Year
  Sex: Male

DRUGS (2)
  1. ALLEGRA [Suspect]
     Indication: HYPERSENSITIVITY
     Dosage: DOSE AND FREQUENCY: 1 TABLET PER DAY
  2. ALLEGRA [Suspect]
     Indication: HYPERSENSITIVITY
     Dosage: DOSE AND FREQUENCY: 2 TABLETS PER DAY FOR 2 DAYS

REACTIONS (2)
  - Urine output decreased [Recovered/Resolved]
  - Drug ineffective [Unknown]
